FAERS Safety Report 21129334 (Version 2)
Quarter: 2022Q4

REPORT INFORMATION
  Report Type: Other
  Country: CA (occurrence: CA)
  Receive Date: 20220725
  Receipt Date: 20221119
  Transmission Date: 20230113
  Serious: Yes (Other)
  Sender: FDA-Public Use
  Company Number: CA-CELLTRION INC.-2022CA011662

PATIENT

DRUGS (24)
  1. RITUXIMAB [Suspect]
     Active Substance: RITUXIMAB
     Indication: Retroperitoneal fibrosis
     Dosage: 500 MG
     Route: 042
  2. RITUXIMAB [Suspect]
     Active Substance: RITUXIMAB
     Indication: Hydronephrosis
     Dosage: UNK
     Route: 065
  3. RITUXIMAB [Suspect]
     Active Substance: RITUXIMAB
     Dosage: UNK
     Route: 041
  4. RITUXIMAB [Suspect]
     Active Substance: RITUXIMAB
     Dosage: UNK
     Route: 065
  5. ACETAMINOPHEN [Concomitant]
     Active Substance: ACETAMINOPHEN
     Indication: Premedication
  6. AMITRIPTYLINE [Concomitant]
     Active Substance: AMITRIPTYLINE
  7. AZATHIOPRINE [Concomitant]
     Active Substance: AZATHIOPRINE
  8. BENADRYL [Concomitant]
     Active Substance: DIPHENHYDRAMINE HYDROCHLORIDE
     Indication: Premedication
     Route: 048
  9. EMPAGLIFLOZIN [Concomitant]
     Active Substance: EMPAGLIFLOZIN
  10. HYDROMORPHONE [Concomitant]
     Active Substance: HYDROMORPHONE
  11. INSULIN NOS [Concomitant]
     Active Substance: INSULIN NOS
  12. LIRAGLUTIDE [Concomitant]
     Active Substance: LIRAGLUTIDE
  13. MELATONIN [Concomitant]
     Active Substance: MELATONIN
  14. METFORMIN [Concomitant]
     Active Substance: METFORMIN HYDROCHLORIDE
     Route: 065
  15. METRONIDAZOLE [Concomitant]
     Active Substance: METRONIDAZOLE
  16. NAPROXEN [Concomitant]
     Active Substance: NAPROXEN
  17. PANTOPRAZOLE [Concomitant]
     Active Substance: PANTOPRAZOLE
  18. PLANTAGO [PLANTAGO MAJOR] [Concomitant]
  19. PRAVASTATIN [Concomitant]
     Active Substance: PRAVASTATIN
  20. SOLU-MEDROL [Concomitant]
     Active Substance: METHYLPREDNISOLONE SODIUM SUCCINATE
     Indication: Premedication
     Route: 065
  21. TADALAFIL [Concomitant]
     Active Substance: TADALAFIL
  22. TAMSULOSIN [Concomitant]
     Active Substance: TAMSULOSIN
     Dosage: UNK
  23. TYLENOL [Concomitant]
     Active Substance: ACETAMINOPHEN
     Indication: Premedication
     Route: 048
  24. VALSARTAN [Concomitant]
     Active Substance: VALSARTAN

REACTIONS (3)
  - Urinary tract infection [Recovered/Resolved]
  - Prostate infection [Recovered/Resolved]
  - Off label use [Unknown]
